FAERS Safety Report 21415136 (Version 1)
Quarter: 2022Q4

REPORT INFORMATION
  Report Type: Report from Study
  Country: US (occurrence: US)
  Receive Date: 20221006
  Receipt Date: 20221006
  Transmission Date: 20230112
  Serious: Yes (Other)
  Sender: FDA-Public Use
  Company Number: US-ABBVIE-4136963

PATIENT
  Age: 31 Year
  Sex: Male

DRUGS (4)
  1. HUMIRA [Suspect]
     Active Substance: ADALIMUMAB
     Indication: Psoriatic arthropathy
     Route: 058
  2. PFIZER-BIONTECH COVID-19 VACCINE [Concomitant]
     Active Substance: TOZINAMERAN
     Indication: COVID-19 immunisation
     Dosage: 3RD BOOSTER DOSE - ONCE
     Route: 030
     Dates: start: 20220728, end: 20220728
  3. Johnson + Johnson covid-19 vaccine [Concomitant]
     Indication: COVID-19 immunisation
     Dosage: 1ST DOSE - ONCE
     Route: 030
     Dates: start: 20220410, end: 20220410
  4. Johnson + Johnson covid-19 vaccine [Concomitant]
     Indication: COVID-19 immunisation
     Dosage: 2ND DOSE - ONCE
     Route: 030
     Dates: start: 20211028, end: 20211028

REACTIONS (3)
  - Hip arthroplasty [Recovering/Resolving]
  - Psoriatic arthropathy [Unknown]
  - Nerve compression [Unknown]

NARRATIVE: CASE EVENT DATE: 20220901
